FAERS Safety Report 6066091-X (Version None)
Quarter: 2009Q1

REPORT INFORMATION
  Report Type: 
  Country: None (occurrence: None)
  Receive Date: 20090130
  Receipt Date: 20090120
  Transmission Date: 20090719
  Serious: Yes (Hospitalization)
  Sender: FDA-Public Use
  Company Number: 2009PL000031

PATIENT
  Age: 36 Year
  Sex: Male

DRUGS (4)
  1. AZATHIOPRINE [Suspect]
     Indication: CROHN'S DISEASE
     Dosage: 150 MG;QD;
     Dates: start: 20060102
  2. AZATHIOPRINE (INFLIXIMAB, RECOMBINANT COMPARATOR) TABLET (NO PREF. NAM [Suspect]
     Indication: CROHN'S DISEASE
     Dosage: 150 MG;QD;
     Dates: start: 20060102
  3. PLACEBO (PLACEBO) LYOPHILIZED POWDER (NO PREF. NAME) [Suspect]
     Indication: CROHN'S DISEASE
     Dosage: 5 MG/KG;QD;IV
     Route: 042
     Dates: start: 20060102
  4. PENTASA [Concomitant]

REACTIONS (3)
  - CONDITION AGGRAVATED [None]
  - CROHN'S DISEASE [None]
  - PHARYNGITIS [None]
